FAERS Safety Report 9644291 (Version 3)
Quarter: 2014Q1

REPORT INFORMATION
  Report Type: Spontaneous
  Country: US (occurrence: US)
  Receive Date: 20131025
  Receipt Date: 20140113
  Transmission Date: 20141002
  Serious: Yes (Life-Threatening, Hospitalization, Other)
  Sender: FDA-Public Use
  Company Number: US-009507513-1310USA009788

PATIENT
  Age: 63 Year
  Sex: Female

DRUGS (6)
  1. NOXAFIL [Suspect]
     Indication: ZYGOMYCOSIS
     Dosage: UNK
     Route: 048
     Dates: start: 20130912, end: 20130914
  2. NOXAFIL [Suspect]
     Dosage: UNK
     Route: 048
     Dates: start: 20131014
  3. AMBISOME [Concomitant]
  4. VANCOMYCIN [Concomitant]
  5. ZOSYN [Concomitant]
  6. BACTRIM [Concomitant]

REACTIONS (3)
  - Drug ineffective [Unknown]
  - Blood pressure abnormal [Unknown]
  - Product quality issue [Unknown]
